FAERS Safety Report 5406593-X (Version None)
Quarter: 2007Q3

REPORT INFORMATION
  Report Type: 
  Country: None (occurrence: None)
  Receive Date: 20070806
  Receipt Date: 20070725
  Transmission Date: 20080115
  Serious: Yes (Other)
  Sender: FDA-Public Use
  Company Number: GB-PFIZER INC-2007058723

PATIENT
  Age: 65 Year
  Sex: Female

DRUGS (11)
  1. ZARONTIN [Suspect]
     Indication: EPILEPSY
     Route: 048
  2. PHENYTOIN [Concomitant]
     Indication: EPILEPSY
     Dosage: FREQ:BID
  3. OPIOIDS [Concomitant]
  4. RANITIDINE [Concomitant]
     Indication: ABDOMINAL DISCOMFORT
     Route: 048
  5. CLOPIDOGREL [Concomitant]
     Indication: MYOCARDIAL INFARCTION
     Route: 048
  6. SIMVASTATIN [Concomitant]
     Indication: HYPERCHOLESTEROLAEMIA
     Route: 048
  7. AMITRIPTYLINE HCL [Concomitant]
     Indication: PAIN
     Route: 048
  8. BENDROFLUMETHIAZIDE [Concomitant]
     Indication: CARDIAC DISORDER
  9. ATENOLOL [Concomitant]
     Indication: CARDIAC DISORDER
  10. PRIMIDONE [Concomitant]
     Indication: EPILEPSY
  11. MORPHINE [Concomitant]
     Indication: PAIN

REACTIONS (1)
  - INTESTINAL OBSTRUCTION [None]
